FAERS Safety Report 7204019-7 (Version None)
Quarter: 2010Q4

REPORT INFORMATION
  Report Type: 
  Country: None (occurrence: None)
  Receive Date: 20101230
  Receipt Date: 20101216
  Transmission Date: 20110411
  Serious: Yes (Hospitalization, Other)
  Sender: FDA-Public Use
  Company Number: PHHY2010AT85538

PATIENT
  Age: 42 Year
  Sex: Female

DRUGS (3)
  1. AMOXICILLIN [Suspect]
     Indication: HELICOBACTER GASTRITIS
     Dosage: 1000MG 2 ? 1
  2. CLARITHROMYCIN [Suspect]
     Indication: HELICOBACTER GASTRITIS
     Dosage: 500MG 2 ? 1
  3. PANTOPRAZOLE [Suspect]
     Indication: HELICOBACTER GASTRITIS
     Dosage: 40MG 1 ? 1

REACTIONS (17)
  - ACUTE PSYCHOSIS [None]
  - AGITATION [None]
  - AMNESTIC DISORDER [None]
  - BRADYPHRENIA [None]
  - CONFUSIONAL STATE [None]
  - CRYING [None]
  - DELUSION [None]
  - DISTURBANCE IN ATTENTION [None]
  - DYSPHORIA [None]
  - EUPHORIC MOOD [None]
  - FEAR [None]
  - HYPERCHOLESTEROLAEMIA [None]
  - HYPERVIGILANCE [None]
  - INSOMNIA [None]
  - NERVOUSNESS [None]
  - NIGHTMARE [None]
  - THINKING ABNORMAL [None]
